FAERS Safety Report 7964884-2 (Version None)
Quarter: 2011Q4

REPORT INFORMATION
  Report Type: 
  Country: None (occurrence: None)
  Receive Date: 20111208
  Receipt Date: 20111201
  Transmission Date: 20120403
  Serious: No
  Sender: FDA-Public Use
  Company Number: US-B.I. PHARMACEUTICALS,INC./RIDGEFIELD-2011-BP-27177BP

PATIENT
  Sex: Female

DRUGS (8)
  1. AMIODARONE HCL [Concomitant]
     Indication: HYPERTENSION
     Dosage: 400 MG
     Route: 048
  2. PREDNISONE TAB [Concomitant]
     Indication: CARDIAC ABLATION
     Dosage: 40 MG
     Route: 048
  3. SYNTHROID [Concomitant]
     Indication: HYPOTHYROIDISM
     Dosage: 0.175 MG
     Route: 048
  4. THYROID TAB [Concomitant]
     Indication: HYPOTHYROIDISM
  5. ATIVAN [Concomitant]
     Indication: INSOMNIA
     Dosage: 5 MG
     Route: 048
  6. PRADAXA [Suspect]
     Indication: ATRIAL FIBRILLATION
     Dosage: 300 MG
     Route: 048
     Dates: start: 20111129
  7. PACERONE [Concomitant]
     Indication: ATRIAL FIBRILLATION
  8. HYDRALAZINE HCL [Concomitant]
     Indication: HYPERTENSION
     Dosage: 75 MG
     Route: 048

REACTIONS (4)
  - ABDOMINAL DISCOMFORT [None]
  - HEADACHE [None]
  - DYSPEPSIA [None]
  - FLATULENCE [None]
